FAERS Safety Report 18457333 (Version 1)
Quarter: 2020Q4

REPORT INFORMATION
  Report Type: Spontaneous
  Country: CN (occurrence: CN)
  Receive Date: 20201030
  Receipt Date: 20201030
  Transmission Date: 20210114
  Serious: Yes (Hospitalization)
  Sender: FDA-Public Use
  Company Number: CN-ASTRAZENECA-2020SF40548

PATIENT
  Age: 26061 Day
  Sex: Female
  Weight: 41 kg

DRUGS (4)
  1. BRILINTA [Suspect]
     Active Substance: TICAGRELOR
     Indication: MYOCARDIAL INFARCTION
     Dosage: 90MG TWO TIMES A DAY TICAGRELOR
     Route: 048
     Dates: start: 20200415
  2. CLOPIDOGREL [Concomitant]
     Active Substance: CLOPIDOGREL BISULFATE
     Route: 048
  3. BRILINTA [Suspect]
     Active Substance: TICAGRELOR
     Indication: MYOCARDIAL INFARCTION
     Dosage: 90 MG HALF DAY
     Route: 048
     Dates: start: 20200415, end: 20200520
  4. BETALOC ZOK [Suspect]
     Active Substance: METOPROLOL SUCCINATE
     Indication: MYOCARDIAL INFARCTION
     Route: 048
     Dates: start: 20200424, end: 20200525

REACTIONS (7)
  - Atrioventricular block second degree [Recovering/Resolving]
  - Amaurosis [Recovering/Resolving]
  - Dizziness [Recovering/Resolving]
  - Nausea [Recovering/Resolving]
  - Electrocardiogram RR interval prolonged [Recovering/Resolving]
  - Altered state of consciousness [Unknown]
  - Cold sweat [Unknown]

NARRATIVE: CASE EVENT DATE: 20200514
